FAERS Safety Report 22287158 (Version 2)
Quarter: 2023Q2

REPORT INFORMATION
  Report Type: Spontaneous
  Country: US (occurrence: US)
  Receive Date: 20230505
  Receipt Date: 20230510
  Transmission Date: 20230721
  Serious: No
  Sender: FDA-Public Use
  Company Number: US-AMGEN-USASP2023076333

PATIENT
  Age: 45 Year
  Sex: Female

DRUGS (1)
  1. TAVNEOS [Suspect]
     Active Substance: AVACOPAN
     Indication: Granulomatosis with polyangiitis
     Dosage: UNK UNK, BID
     Route: 065
     Dates: start: 20230405, end: 20230413

REACTIONS (8)
  - Pain [Unknown]
  - Pyrexia [Unknown]
  - Palpitations [Unknown]
  - Pollakiuria [Unknown]
  - Tremor [Unknown]
  - Weight decreased [Unknown]
  - Vomiting [Unknown]
  - Nausea [Unknown]

NARRATIVE: CASE EVENT DATE: 20230401
